FAERS Safety Report 4522390-1 (Version None)
Quarter: 2004Q4

REPORT INFORMATION
  Report Type: 
  Country: None (occurrence: None)
  Receive Date: 20041207
  Receipt Date: 20041117
  Transmission Date: 20050328
  Serious: Yes (Hospitalization, Disabling, Other)
  Sender: FDA-Public Use
  Company Number: USA020617097

PATIENT
  Age: 42 Year
  Sex: Male
  Weight: 93 kg

DRUGS (6)
  1. HUMALOG [Suspect]
     Indication: DIABETES MELLITUS
     Dates: start: 19960101
  2. HUMULIN U [Suspect]
     Indication: DIABETES MELLITUS
     Dates: start: 19820101, end: 19960101
  3. NPH ILETIN I (BEEF-PORK) [Suspect]
     Indication: DIABETES MELLITUS
     Dates: start: 19620101, end: 19820101
  4. ILETIN-BEEF/PORK REGULAR INSULIN (INSULIN, ANIMAL) [Suspect]
     Indication: DIABETES MELLITUS
     Dates: start: 19620101, end: 19820101
  5. HUMULIN R [Suspect]
     Indication: DIABETES MELLITUS
     Dates: start: 19820101, end: 19960101
  6. NOVOLOG [Concomitant]

REACTIONS (16)
  - ACOUSTIC NEUROMA [None]
  - ADVERSE DRUG REACTION [None]
  - BLINDNESS [None]
  - BLOOD GLUCOSE DECREASED [None]
  - BLOOD GLUCOSE INCREASED [None]
  - BRAIN NEOPLASM [None]
  - COMA [None]
  - CONVULSION [None]
  - DIABETES MELLITUS INSULIN-DEPENDENT [None]
  - DIABETIC RETINOPATHY [None]
  - EPILEPSY [None]
  - EYE HAEMORRHAGE [None]
  - MEDICATION ERROR [None]
  - NEUROPATHY PERIPHERAL [None]
  - ROAD TRAFFIC ACCIDENT [None]
  - SCOTOMA [None]
